FAERS Safety Report 8942255 (Version 1)
Quarter: 2012Q4

REPORT INFORMATION
  Report Type: Spontaneous
  Country: US (occurrence: None)
  Receive Date: 20121129
  Receipt Date: 20121129
  Transmission Date: 20130627
  Serious: No
  Sender: FDA-Public Use
  Company Number: None

PATIENT
  Age: 52 Year
  Sex: Female

DRUGS (1)
  1. IBUPROFEN [Suspect]
     Indication: PAIN
     Dates: start: 20110309, end: 20110910

REACTIONS (4)
  - Acidosis [None]
  - Hypoxia [None]
  - Hypersensitivity [None]
  - Blood pressure decreased [None]
